FAERS Safety Report 6677570-6 (Version None)
Quarter: 2010Q2

REPORT INFORMATION
  Report Type: 
  Country: None (occurrence: None)
  Receive Date: 20100412
  Receipt Date: 20100217
  Transmission Date: 20101027
  Serious: No
  Sender: FDA-Public Use
  Company Number: US-ALEXION-A201000192

PATIENT
  Sex: Male

DRUGS (10)
  1. SOLIRIS [Suspect]
     Indication: PAROXYSMAL NOCTURNAL HAEMOGLOBINURIA
     Dosage: 600 MG, UNK
     Route: 042
     Dates: start: 20080317
  2. SOLIRIS [Suspect]
     Dosage: 900 MG, Q2W
     Route: 042
  3. COUMADIN [Concomitant]
     Indication: ANTICOAGULANT THERAPY
     Dosage: 1 MG, QD
     Route: 048
  4. HYDROCODONE BITARTRATE [Concomitant]
     Indication: PAIN
     Dosage: UNK
     Route: 048
  5. FOLIC ACID [Concomitant]
     Indication: PAROXYSMAL NOCTURNAL HAEMOGLOBINURIA
     Dosage: 1 MG, BID
     Route: 048
  6. NEXIUM [Concomitant]
     Indication: ABDOMINAL DISCOMFORT
     Dosage: UNK
     Route: 048
  7. ZOLOFT [Concomitant]
     Dosage: UNK
     Route: 048
  8. CENTRUM                            /00554501/ [Concomitant]
     Dosage: UNK
     Route: 048
  9. VITAMIN B                          /90046501/ [Concomitant]
     Dosage: 1000 UNITS
     Route: 048
  10. LOVAZA [Concomitant]
     Dosage: UNK
     Route: 048

REACTIONS (3)
  - HAPTOGLOBIN DECREASED [None]
  - LIVER FUNCTION TEST ABNORMAL [None]
  - RETICULOCYTE COUNT INCREASED [None]
